FAERS Safety Report 14691763 (Version 1)
Quarter: 2018Q1

REPORT INFORMATION
  Report Type: Spontaneous
  Country: CA (occurrence: CA)
  Receive Date: 20180329
  Receipt Date: 20180329
  Transmission Date: 20180509
  Serious: Yes (Other)
  Sender: FDA-Public Use
  Company Number: CA-UCBSA-2018012045

PATIENT
  Age: 29 Year
  Sex: Female
  Weight: 48 kg

DRUGS (1)
  1. KEPPRA [Suspect]
     Active Substance: LEVETIRACETAM
     Indication: EPILEPSY
     Dosage: 500 MG, 2X/DAY (BID)
     Route: 048

REACTIONS (11)
  - Chills [Unknown]
  - Pyrexia [Unknown]
  - Rash [Unknown]
  - Seizure [Unknown]
  - Influenza [Unknown]
  - Oropharyngeal pain [Unknown]
  - Stomatitis [Unknown]
  - Gait disturbance [Unknown]
  - Hallucination [Unknown]
  - Drug hypersensitivity [Unknown]
  - Pain [Unknown]
